FAERS Safety Report 4453924-3 (Version None)
Quarter: 2004Q3

REPORT INFORMATION
  Report Type: 
  Country: None (occurrence: None)
  Receive Date: 20040826
  Receipt Date: 20040427
  Transmission Date: 20050211
  Serious: No
  Sender: FDA-Public Use
  Company Number: WAES 0404USA02369

PATIENT

DRUGS (2)
  1. ZETIA [Suspect]
     Dosage: PO
     Route: 048
  2. ZOCOR [Concomitant]

REACTIONS (4)
  - ARTHRALGIA [None]
  - BACK PAIN [None]
  - MYALGIA [None]
  - PAIN IN EXTREMITY [None]
